FAERS Safety Report 18395632 (Version 3)
Quarter: 2020Q4

REPORT INFORMATION
  Report Type: Report from Study
  Country: US (occurrence: US)
  Receive Date: 20201017
  Receipt Date: 20201215
  Transmission Date: 20210114
  Serious: No
  Sender: FDA-Public Use
  Company Number: NVSC2020US279023

PATIENT
  Sex: Female

DRUGS (1)
  1. COSENTYX [Suspect]
     Active Substance: SECUKINUMAB
     Indication: PSORIASIS
     Dosage: 300 MG, OTHER (ONCE WEEKLY FOR 5 WEEKS THEN ONCE EVERY 4 WEEKS)
     Route: 058
     Dates: start: 20200820

REACTIONS (7)
  - Cystitis [Recovered/Resolved]
  - Injection site inflammation [Unknown]
  - Injection site erythema [Unknown]
  - Injection site warmth [Unknown]
  - Inappropriate schedule of product administration [Unknown]
  - Arthritis [Unknown]
  - Injection site pruritus [Unknown]
